FAERS Safety Report 24299300 (Version 1)
Quarter: 2024Q3

REPORT INFORMATION
  Report Type: Report from Study
  Country: US (occurrence: US)
  Receive Date: 20240909
  Receipt Date: 20240909
  Transmission Date: 20241017
  Serious: Yes (Other)
  Sender: SANOFI AVENTIS
  Company Number: US-SA-2024SA259518

PATIENT
  Age: 55 Year
  Sex: Female
  Weight: 144 kg

DRUGS (1)
  1. DUPILUMAB [Suspect]
     Active Substance: DUPILUMAB
     Indication: Asthma
     Dosage: 300 MG, QOW
     Route: 058

REACTIONS (5)
  - Injection site vesicles [Unknown]
  - Injection site pain [Unknown]
  - Condition aggravated [Unknown]
  - Injection site swelling [Unknown]
  - Injection site erythema [Unknown]
